FAERS Safety Report 21976323 (Version 1)
Quarter: 2023Q1

REPORT INFORMATION
  Report Type: Spontaneous
  Country: US (occurrence: US)
  Receive Date: 20230210
  Receipt Date: 20230210
  Transmission Date: 20230417
  Serious: No
  Sender: FDA-Public Use
  Company Number: US-GLENMARK PHARMACEUTICALS-2022GMK073173

PATIENT

DRUGS (3)
  1. ZONISAMIDE [Suspect]
     Active Substance: ZONISAMIDE
     Indication: Seizure
     Dosage: UNK
     Route: 048
  2. ZONISAMIDE [Suspect]
     Active Substance: ZONISAMIDE
     Indication: Seizure
     Dosage: UNK
     Route: 048
  3. VALIUM [Concomitant]
     Active Substance: DIAZEPAM
     Indication: Seizure
     Dosage: UNK
     Route: 065

REACTIONS (14)
  - Feeling abnormal [Unknown]
  - Recalled product administered [Unknown]
  - Headache [Unknown]
  - Amnesia [Unknown]
  - Somnolence [Unknown]
  - Decreased appetite [Unknown]
  - Ataxia [Unknown]
  - Irritability [Unknown]
  - Agitation [Unknown]
  - Dizziness [Unknown]
  - Disturbance in attention [Unknown]
  - Vomiting [Unknown]
  - Diarrhoea [Unknown]
  - Drug ineffective [Unknown]
